FAERS Safety Report 8505802-8 (Version None)
Quarter: 2012Q3

REPORT INFORMATION
  Report Type: 
  Country: None (occurrence: None)
  Receive Date: 20120712
  Receipt Date: 20120701
  Transmission Date: 20120928
  Serious: Yes (Disabling)
  Sender: FDA-Public Use
  Company Number: FR-009507513-1207FRA00006

PATIENT

DRUGS (9)
  1. RAMIPRIL [Concomitant]
     Route: 048
  2. ALLOPURINOL [Concomitant]
     Route: 048
  3. LAMISIL [Concomitant]
  4. ISENTRESS [Suspect]
     Indication: OESOPHAGITIS
     Dosage: 400 MG, BID
     Route: 048
     Dates: start: 20090601
  5. PANTOPRAZOLE SODIUM [Suspect]
     Indication: OESOPHAGITIS
     Dosage: 40 MG, BID
     Route: 048
  6. INTELENCE [Suspect]
     Indication: HIV INFECTION
     Dosage: 2 U, BID
     Route: 048
     Dates: start: 20090601
  7. EZETIMIBE [Concomitant]
     Dosage: 10 MG, QD
  8. VITAMIN D [Concomitant]
     Route: 048
  9. BISOPROLOL FUMARATE [Concomitant]
     Route: 048

REACTIONS (1)
  - NEUROPATHY PERIPHERAL [None]
